FAERS Safety Report 15835211 (Version 2)
Quarter: 2019Q1

REPORT INFORMATION
  Report Type: Report from Study
  Country: BR (occurrence: BR)
  Receive Date: 20190116
  Receipt Date: 20190119
  Transmission Date: 20190417
  Serious: Yes (Life-Threatening, Other)
  Sender: FDA-Public Use
  Company Number: PHHY2019BR007497

PATIENT
  Age: 63 Year
  Sex: Male
  Weight: 95 kg

DRUGS (4)
  1. COSENTYX [Suspect]
     Active Substance: SECUKINUMAB
     Indication: PSORIATIC ARTHROPATHY
     Dosage: 300 MG, QW
     Route: 058
     Dates: start: 20181101
  2. LOSARTAN. [Concomitant]
     Active Substance: LOSARTAN
     Indication: HYPERTENSION
     Dosage: 2 DF, QD
     Route: 048
  3. AMITRIPTYLINE [Concomitant]
     Active Substance: AMITRIPTYLINE
     Indication: SLEEP DISORDER
     Dosage: 1 DF, QD (4 YEARS AGO)
     Route: 048
  4. COSENTYX [Suspect]
     Active Substance: SECUKINUMAB
     Dosage: UNK
     Route: 065
     Dates: start: 20181229

REACTIONS (16)
  - Psoriatic arthropathy [Unknown]
  - Peripheral swelling [Not Recovered/Not Resolved]
  - Hepatitis [Not Recovered/Not Resolved]
  - Skin exfoliation [Recovering/Resolving]
  - Skin wrinkling [Unknown]
  - Thrombosis [Recovering/Resolving]
  - Skin lesion [Recovering/Resolving]
  - Psoriasis [Recovering/Resolving]
  - Anxiety [Recovering/Resolving]
  - Weight decreased [Not Recovered/Not Resolved]
  - Skin haemorrhage [Recovering/Resolving]
  - Agitation [Recovering/Resolving]
  - Road traffic accident [Recovering/Resolving]
  - Skin atrophy [Recovering/Resolving]
  - Osteoarthritis [Recovering/Resolving]
  - Nervousness [Recovering/Resolving]

NARRATIVE: CASE EVENT DATE: 20190105
